FAERS Safety Report 17781297 (Version 1)
Quarter: 2020Q2

REPORT INFORMATION
  Report Type: Spontaneous
  Country: US (occurrence: US)
  Receive Date: 20200514
  Receipt Date: 20200514
  Transmission Date: 20200714
  Serious: No
  Sender: FDA-Public Use
  Company Number: US-TORRENT-00009405

PATIENT
  Age: 65 Year
  Sex: Female
  Weight: 99 kg

DRUGS (2)
  1. AMLODIPINE [Concomitant]
     Active Substance: AMLODIPINE BESYLATE
     Indication: HYPERTENSION
     Dosage: TAKING FROM LAST THREE YEARS
     Route: 048
     Dates: start: 2016
  2. LOSARTAN AND HYDROCHLOROTHIAZIDE [Suspect]
     Active Substance: HYDROCHLOROTHIAZIDE\LOSARTAN POTASSIUM
     Indication: HYPERTENSION
     Dosage: FOR OVER THREE YEARS
     Route: 048
     Dates: end: 2019

REACTIONS (3)
  - Burning sensation [Not Recovered/Not Resolved]
  - Oral mucosal eruption [Not Recovered/Not Resolved]
  - Rash [Not Recovered/Not Resolved]
